FAERS Safety Report 7135550-0 (Version None)
Quarter: 2010Q4

REPORT INFORMATION
  Report Type: 
  Country: None (occurrence: None)
  Receive Date: 20101203
  Receipt Date: 20101122
  Transmission Date: 20110411
  Serious: Yes (Disabling, Other)
  Sender: FDA-Public Use
  Company Number: US-SANOFI-AVENTIS-2010SA071058

PATIENT
  Age: 73 Year
  Sex: Male
  Weight: 102 kg

DRUGS (11)
  1. PLAVIX [Suspect]
     Route: 048
     Dates: start: 20070801
  2. PLAVIX [Suspect]
     Indication: STENT PLACEMENT
     Route: 048
     Dates: start: 20070801
  3. METOPROLOL [Concomitant]
  4. CRESTOR [Concomitant]
     Route: 048
  5. ASPIRIN [Concomitant]
  6. HYDROCHLOROTHIAZIDE [Concomitant]
  7. DIOVANE [Concomitant]
  8. NITROGLYCERIN [Concomitant]
  9. TAMSULOSIN HYDROCHLORIDE [Concomitant]
  10. NIACIN [Concomitant]
  11. FISH OIL [Concomitant]

REACTIONS (2)
  - BACK PAIN [None]
  - CORONARY ARTERY OCCLUSION [None]
